FAERS Safety Report 5920906-1 (Version None)
Quarter: 2008Q4

REPORT INFORMATION
  Report Type: 
  Country: None (occurrence: None)
  Receive Date: 20081015
  Receipt Date: 20081015
  Transmission Date: 20090506
  Serious: Yes (Other)
  Sender: FDA-Public Use
  Company Number: None

PATIENT
  Age: 45 Year
  Sex: Male
  Weight: 90.7194 kg

DRUGS (1)
  1. TRAVATAN Z [Suspect]
     Indication: INTRAOCULAR PRESSURE INCREASED
     Dosage: ONE DROP IN RIGHT EYE ONCE A DAY INTRAOCULAR
     Route: 031
     Dates: start: 20071117, end: 20081017

REACTIONS (1)
  - BENIGN PROSTATIC HYPERPLASIA [None]
